FAERS Safety Report 15029126 (Version 2)
Quarter: 2018Q2

REPORT INFORMATION
  Report Type: Report from Study
  Country: US (occurrence: US)
  Receive Date: 20180619
  Receipt Date: 20180622
  Transmission Date: 20180711
  Serious: Yes (Other)
  Sender: FDA-Public Use
  Company Number: US-PFIZER INC-2018244747

PATIENT
  Sex: Male

DRUGS (1)
  1. METHOTREXATE SODIUM. [Suspect]
     Active Substance: METHOTREXATE SODIUM
     Indication: INFLAMMATORY BOWEL DISEASE
     Dosage: 12.5 MG, WEEKLY
     Route: 048

REACTIONS (3)
  - Spermatozoa abnormal [Unknown]
  - Oxidative stress [Unknown]
  - Cytogenetic abnormality [Unknown]
